FAERS Safety Report 17142433 (Version 19)
Quarter: 2022Q3

REPORT INFORMATION
  Report Type: Spontaneous
  Country: US (occurrence: None)
  Receive Date: 20191211
  Receipt Date: 20220815
  Transmission Date: 20221026
  Serious: No
  Sender: FDA-Public Use
  Company Number: US-EISAI MEDICAL RESEARCH-EC-2019-066621

PATIENT
  Age: 82 Year
  Sex: Male

DRUGS (22)
  1. FYCOMPA [Suspect]
     Active Substance: PERAMPANEL
     Indication: Partial seizures
     Route: 048
     Dates: start: 20191122, end: 20191130
  2. FYCOMPA [Suspect]
     Active Substance: PERAMPANEL
     Route: 048
     Dates: start: 20191201, end: 20191206
  3. FYCOMPA [Suspect]
     Active Substance: PERAMPANEL
     Route: 048
     Dates: start: 20191207, end: 20200206
  4. FYCOMPA [Suspect]
     Active Substance: PERAMPANEL
     Route: 048
     Dates: start: 20200207, end: 202205
  5. FYCOMPA [Suspect]
     Active Substance: PERAMPANEL
     Dosage: 8 MG EVERY 3 DAYS AND 6 MG ON DAY 4
     Route: 048
     Dates: start: 202205
  6. APTIOM [Suspect]
     Active Substance: ESLICARBAZEPINE ACETATE
     Indication: Product used for unknown indication
     Route: 065
  7. APTIOM [Suspect]
     Active Substance: ESLICARBAZEPINE ACETATE
     Dosage: DOSAGE AND FREQUENCY UNKNOWN (SLOW UP TITRATION)
     Route: 065
  8. APTIOM [Suspect]
     Active Substance: ESLICARBAZEPINE ACETATE
     Route: 065
  9. APTIOM [Suspect]
     Active Substance: ESLICARBAZEPINE ACETATE
     Dosage: DOSAGE AND FREQUENCY UNKNOWN (SLOW DOWN TITRATION)
     Route: 065
  10. APTIOM [Suspect]
     Active Substance: ESLICARBAZEPINE ACETATE
     Route: 065
  11. APTIOM [Suspect]
     Active Substance: ESLICARBAZEPINE ACETATE
     Route: 065
  12. KEPPRA [Concomitant]
     Active Substance: LEVETIRACETAM
     Indication: Seizure
     Route: 048
  13. KEPPRA [Concomitant]
     Active Substance: LEVETIRACETAM
     Dosage: 1000 MG IN THE MORNING, 500 MG IN THE EVENING (EVERY DAY)
     Route: 048
  14. KEPPRA [Concomitant]
     Active Substance: LEVETIRACETAM
     Dosage: 700 MG IN THE MORNING, 1000 MG IN THE EVENING (EVERY DAY)
     Route: 048
  15. KEPPRA [Concomitant]
     Active Substance: LEVETIRACETAM
     Route: 048
  16. KEPPRA [Concomitant]
     Active Substance: LEVETIRACETAM
     Dosage: 100 MG IN MORNING AND 75 MG IN EVENING, DAILY
     Route: 048
  17. KEPPRA [Concomitant]
     Active Substance: LEVETIRACETAM
     Route: 048
  18. KEPPRA [Concomitant]
     Active Substance: LEVETIRACETAM
     Dosage: 1700 MG, FREQUENCY UNKNOWN
     Route: 048
  19. KEPPRA [Concomitant]
     Active Substance: LEVETIRACETAM
     Route: 048
  20. DILANTIN [Concomitant]
     Active Substance: PHENYTOIN
     Indication: Product used for unknown indication
     Route: 048
  21. DILANTIN [Concomitant]
     Active Substance: PHENYTOIN
     Route: 048
  22. DILANTIN [Concomitant]
     Active Substance: PHENYTOIN
     Route: 048
     Dates: end: 2020

REACTIONS (11)
  - Balance disorder [Not Recovered/Not Resolved]
  - Fall [Recovered/Resolved]
  - Amnesia [Not Recovered/Not Resolved]
  - Seizure [Unknown]
  - Epileptic aura [Unknown]
  - Insomnia [Unknown]
  - Slow speech [Unknown]
  - Dysarthria [Not Recovered/Not Resolved]
  - Gait disturbance [Not Recovered/Not Resolved]
  - Gastrooesophageal reflux disease [Not Recovered/Not Resolved]
  - Fatigue [Not Recovered/Not Resolved]

NARRATIVE: CASE EVENT DATE: 20190101
